FAERS Safety Report 7743381-3 (Version None)
Quarter: 2011Q3

REPORT INFORMATION
  Report Type: 
  Country: None (occurrence: None)
  Receive Date: 20110912
  Receipt Date: 20110905
  Transmission Date: 20111222
  Serious: Yes (Other)
  Sender: FDA-Public Use
  Company Number: PHHY2011MX80204

PATIENT
  Sex: Female

DRUGS (4)
  1. LEVOTHYROXINE SODIUM [Concomitant]
     Dosage: 1 DF DAILY
     Dates: start: 20110701
  2. ZOLEDRONOC ACID [Suspect]
     Indication: OSTEOPOROSIS
     Dosage: 5 MG/100 ML EACH YEAR
     Route: 042
     Dates: start: 20110430
  3. ROCALTROL [Concomitant]
     Dosage: 1 DF EACH 3 DAY
     Dates: start: 20110701
  4. NOVOTIRAL [Concomitant]
     Dosage: UNK UKN, UNK

REACTIONS (5)
  - FOOT FRACTURE [None]
  - PAIN [None]
  - INFLUENZA [None]
  - PYREXIA [None]
  - OEDEMA PERIPHERAL [None]
